FAERS Safety Report 15802770 (Version 4)
Quarter: 2019Q2

REPORT INFORMATION
  Report Type: Report from Study
  Country: ES (occurrence: ES)
  Receive Date: 20190109
  Receipt Date: 20190528
  Transmission Date: 20190711
  Serious: Yes (Hospitalization)
  Sender: FDA-Public Use
  Company Number: ES-ROCHE-2228193

PATIENT
  Age: 72 Year
  Sex: Female

DRUGS (43)
  1. PARACETAMOL [Concomitant]
     Active Substance: ACETAMINOPHEN
     Route: 065
     Dates: start: 20181130
  2. BROMAZEPAM [Concomitant]
     Active Substance: BROMAZEPAM
     Indication: ASTHENIA
     Route: 065
     Dates: start: 20181211, end: 20181219
  3. PREDNISONA [Concomitant]
     Active Substance: PREDNISONE
     Route: 048
     Dates: start: 20190316, end: 20190322
  4. ATEZOLIZUMAB. [Suspect]
     Active Substance: ATEZOLIZUMAB
     Indication: NON-SMALL CELL LUNG CANCER
     Dosage: MOST RECENT DOSE OF ATEZOLIZUMAB PRIOR TO AE ONSET ON 07/NOV/2018
     Route: 042
     Dates: start: 20181107
  5. ENALAPRIL/HCT [Concomitant]
     Indication: HYPERTENSION
  6. PREDNISONA [Concomitant]
     Active Substance: PREDNISONE
     Route: 048
     Dates: start: 20190222, end: 20190308
  7. PREDNISONA [Concomitant]
     Active Substance: PREDNISONE
     Route: 048
     Dates: start: 20190308, end: 20190315
  8. TRAMADOL. [Concomitant]
     Active Substance: TRAMADOL
     Indication: PAIN PROPHYLAXIS
     Route: 065
     Dates: start: 20181121, end: 20181123
  9. DEXKETOPROFENO [DEXKETOPROFEN] [Concomitant]
     Indication: PAIN PROPHYLAXIS
     Route: 065
     Dates: start: 20181125, end: 20181130
  10. DEXKETOPROFENO [DEXKETOPROFEN] [Concomitant]
     Route: 065
     Dates: start: 20181130, end: 20181203
  11. TIAMAZOL [Concomitant]
     Route: 065
     Dates: start: 20181128, end: 2019
  12. PREGABALINA [Concomitant]
     Active Substance: PREGABALIN
     Indication: IMMUNE-MEDIATED ADVERSE REACTION
     Route: 065
     Dates: start: 20181127, end: 20181203
  13. DEXAMETHASONE. [Concomitant]
     Active Substance: DEXAMETHASONE
     Indication: IMMUNE-MEDIATED ADVERSE REACTION
     Route: 048
     Dates: start: 20181129, end: 20181205
  14. PREDNISONA [Concomitant]
     Active Substance: PREDNISONE
     Route: 048
     Dates: start: 20181218, end: 20181219
  15. PREDNISONA [Concomitant]
     Active Substance: PREDNISONE
     Route: 048
     Dates: start: 20190111, end: 20190208
  16. PREDNISONA [Concomitant]
     Active Substance: PREDNISONE
     Route: 048
     Dates: start: 20190510
  17. CISPLATIN. [Suspect]
     Active Substance: CISPLATIN
     Indication: NON-SMALL CELL LUNG CANCER
     Dosage: DOSE OF LAST CISPLATIN ADMINISTERED 127.5 MG
     Route: 042
     Dates: start: 20180712
  18. PEMETREXED. [Suspect]
     Active Substance: PEMETREXED
     Indication: NON-SMALL CELL LUNG CANCER
     Dosage: DOSE OF LAST PEMETREXED ADMINISTERED PRIOR TO EVENT ONSET: 680 MG
     Route: 042
     Dates: start: 20180712
  19. OMEPRAZOL [OMEPRAZOLE] [Concomitant]
     Active Substance: OMEPRAZOLE
     Dosage: GASTROINTESTINAL REFLUXE
     Route: 065
  20. DEXAMETHASONE. [Concomitant]
     Active Substance: DEXAMETHASONE
     Route: 048
     Dates: start: 20181205, end: 20181210
  21. PARACETAMOL [Concomitant]
     Active Substance: ACETAMINOPHEN
     Indication: TUMOUR PAIN
     Route: 065
     Dates: start: 20181123, end: 20181203
  22. PARACETAMOL [Concomitant]
     Active Substance: ACETAMINOPHEN
     Route: 065
     Dates: start: 20181210, end: 20181221
  23. BROMAZEPAM [Concomitant]
     Active Substance: BROMAZEPAM
     Route: 065
     Dates: start: 20181127, end: 20181203
  24. METAMIZOL [Concomitant]
     Active Substance: METAMIZOLE SODIUM
     Indication: TUMOUR PAIN
     Route: 065
     Dates: start: 20181211, end: 20181221
  25. PREDNISONA [Concomitant]
     Active Substance: PREDNISONE
     Route: 048
     Dates: start: 20181219, end: 20181228
  26. PREDNISONA [Concomitant]
     Active Substance: PREDNISONE
     Route: 048
     Dates: start: 20190208, end: 20190222
  27. ENOXAPARINA [Concomitant]
     Active Substance: ENOXAPARIN
     Indication: IMMUNE-MEDIATED ADVERSE REACTION
     Route: 065
     Dates: start: 20181124, end: 20181203
  28. TIAMAZOL [Concomitant]
     Route: 065
     Dates: start: 20181210, end: 20181221
  29. TIAMAZOL [Concomitant]
     Route: 065
     Dates: start: 20181121, end: 20181123
  30. AMITRIPTILINA [AMITRIPTYLINE] [Concomitant]
     Indication: IMMUNE-MEDIATED ADVERSE REACTION
     Route: 065
     Dates: start: 20181127, end: 20181203
  31. LACTULOSA [Concomitant]
     Active Substance: LACTULOSE
     Indication: ABDOMINAL PAIN
     Route: 065
     Dates: start: 20181202, end: 20181203
  32. PREDNISONA [Concomitant]
     Active Substance: PREDNISONE
     Route: 048
     Dates: start: 20181228, end: 20190111
  33. PREDNISONA [Concomitant]
     Active Substance: PREDNISONE
     Route: 048
     Dates: start: 20190323, end: 20190413
  34. SIMVASTATINE [Concomitant]
     Active Substance: SIMVASTATIN
     Indication: DYSLIPIDAEMIA
  35. ADIRO [Concomitant]
     Active Substance: ASPIRIN
     Indication: THROMBOSIS PROPHYLAXIS
  36. LORAZEPAM. [Concomitant]
     Active Substance: LORAZEPAM
     Indication: PROPHYLAXIS
  37. DEXAMETHASONE. [Concomitant]
     Active Substance: DEXAMETHASONE
     Route: 048
  38. FUROSEMIDA [FUROSEMIDE] [Concomitant]
     Indication: ASTHENIA
     Route: 065
     Dates: start: 20181217, end: 20181221
  39. PREDNISONA [Concomitant]
     Active Substance: PREDNISONE
     Route: 048
     Dates: start: 20190414, end: 20190510
  40. IDEOS [Concomitant]
     Active Substance: CALCIUM CARBONATE\CHOLECALCIFEROL
     Indication: OSTEOPOROSIS PROPHYLAXIS
  41. DIAZEPAM. [Concomitant]
     Active Substance: DIAZEPAM
     Route: 065
     Dates: start: 20181125, end: 20181127
  42. AMOXICILLIN. [Concomitant]
     Active Substance: AMOXICILLIN
     Indication: IMMUNE-MEDIATED ADVERSE REACTION
     Route: 065
     Dates: start: 20181120, end: 20181123
  43. PREDNISONA [Concomitant]
     Active Substance: PREDNISONE
     Indication: AXONAL NEUROPATHY
     Route: 048
     Dates: start: 20181218, end: 20181219

REACTIONS (1)
  - Axonal neuropathy [Recovering/Resolving]

NARRATIVE: CASE EVENT DATE: 20181205
